FAERS Safety Report 19237839 (Version 1)
Quarter: 2021Q2

REPORT INFORMATION
  Report Type: Spontaneous
  Country: GB (occurrence: GB)
  Receive Date: 20210510
  Receipt Date: 20210510
  Transmission Date: 20210717
  Serious: Yes (Hospitalization)
  Sender: FDA-Public Use
  Company Number: GB-VERTEX PHARMACEUTICALS-2021-007186

PATIENT
  Sex: Male

DRUGS (2)
  1. KAFTRIO [Suspect]
     Active Substance: ELEXACAFTOR\IVACAFTOR\TEZACAFTOR
     Indication: CYSTIC FIBROSIS
     Dosage: 2 TABS (75MG IVA/ 50MG TEZA/ 100MG ELEXA) AM
     Route: 048
     Dates: start: 202101
  2. KALYDECO [Suspect]
     Active Substance: IVACAFTOR
     Indication: CYSTIC FIBROSIS
     Dosage: 150MG IVACAFTOR IN THE EVENING
     Route: 048
     Dates: start: 202101

REACTIONS (4)
  - Pruritus [Unknown]
  - Skin depigmentation [Unknown]
  - Chest pain [Unknown]
  - Dyspnoea [Unknown]

NARRATIVE: CASE EVENT DATE: 202101
